FAERS Safety Report 19588930 (Version 1)
Quarter: 2021Q3

REPORT INFORMATION
  Report Type: Spontaneous
  Country: CA (occurrence: CA)
  Receive Date: 20210721
  Receipt Date: 20210721
  Transmission Date: 20211014
  Serious: Yes (Other)
  Sender: FDA-Public Use
  Company Number: CA-ASTRAZENECA-2021A622498

PATIENT
  Age: 76 Year
  Sex: Female

DRUGS (9)
  1. FULVESTRANT. [Suspect]
     Active Substance: FULVESTRANT
     Indication: SEROUS CYSTADENOCARCINOMA OVARY
     Route: 065
  2. IBRANCE [Suspect]
     Active Substance: PALBOCICLIB
     Indication: SEROUS CYSTADENOCARCINOMA OVARY
     Dosage: 125.0MG UNKNOWN
     Route: 048
  3. GEMCITABINE. [Suspect]
     Active Substance: GEMCITABINE
     Indication: SEROUS CYSTADENOCARCINOMA OVARY
     Route: 065
  4. LETROZOLE. [Suspect]
     Active Substance: LETROZOLE
     Indication: SEROUS CYSTADENOCARCINOMA OVARY
     Route: 065
  5. MEGACE [Suspect]
     Active Substance: MEGESTROL ACETATE
     Indication: SEROUS CYSTADENOCARCINOMA OVARY
     Route: 065
  6. METFORMIN [Suspect]
     Active Substance: METFORMIN HYDROCHLORIDE
     Indication: SEROUS CYSTADENOCARCINOMA OVARY
     Route: 065
  7. PEGYLATED LIPOSOMAL DOXORUBICIN HYDROCHLORIDE [Suspect]
     Active Substance: DOXORUBICIN HYDROCHLORIDE
     Indication: SEROUS CYSTADENOCARCINOMA OVARY
     Route: 065
  8. CARBOPLATIN. [Suspect]
     Active Substance: CARBOPLATIN
     Indication: SEROUS CYSTADENOCARCINOMA OVARY
     Route: 065
  9. TAMOXIFEN [Suspect]
     Active Substance: TAMOXIFEN
     Indication: SEROUS CYSTADENOCARCINOMA OVARY
     Route: 065

REACTIONS (3)
  - Malignant neoplasm progression [Unknown]
  - Serous cystadenocarcinoma ovary [Unknown]
  - Off label use [Unknown]
